FAERS Safety Report 5011632-4 (Version None)
Quarter: 2006Q2

REPORT INFORMATION
  Report Type: 
  Country: None (occurrence: None)
  Receive Date: 20060526
  Receipt Date: 20060518
  Transmission Date: 20061013
  Serious: Yes (Death)
  Sender: FDA-Public Use
  Company Number: US-JNJFOC-20031000561

PATIENT
  Sex: Male

DRUGS (21)
  1. REMICADE [Suspect]
     Indication: RHEUMATOID ARTHRITIS
     Route: 042
  2. FOSOMAX [Concomitant]
  3. CARAFATE [Concomitant]
  4. LASIX [Concomitant]
  5. POTASSIUM [Concomitant]
  6. DICYCLOMINE [Concomitant]
  7. IRON [Concomitant]
  8. ASPIRIN [Concomitant]
  9. BETAPACE [Concomitant]
  10. PREDNISONE TAB [Concomitant]
  11. PRILOSEC [Concomitant]
  12. FLOMAX [Concomitant]
  13. PROSCAR [Concomitant]
  14. MULTI-VITAMIN [Concomitant]
  15. MULTI-VITAMIN [Concomitant]
  16. MULTI-VITAMIN [Concomitant]
  17. MULTI-VITAMIN [Concomitant]
  18. MULTI-VITAMIN [Concomitant]
  19. MULTI-VITAMIN [Concomitant]
  20. MULTI-VITAMIN [Concomitant]
  21. MULTI-VITAMIN [Concomitant]

REACTIONS (5)
  - COLON CANCER [None]
  - INTERSTITIAL LUNG DISEASE [None]
  - PNEUMONIA [None]
  - RESPIRATORY FAILURE [None]
  - RHEUMATOID ARTHRITIS [None]
